FAERS Safety Report 7224699-X (Version None)
Quarter: 2010Q4

REPORT INFORMATION
  Report Type: 
  Country: None (occurrence: None)
  Receive Date: 20101126
  Receipt Date: 20100902
  Transmission Date: 20110411
  Serious: No
  Sender: FDA-Public Use
  Company Number: 314165

PATIENT
  Age: 51 Year
  Sex: Female

DRUGS (8)
  1. VICTOZA [Suspect]
     Indication: TYPE 2 DIABETES MELLITUS
     Dosage: 0.6 MG, QD, SUBCUTANEOUS
     Route: 058
     Dates: start: 20100901
  2. METFORMIN HCL [Suspect]
     Indication: TYPE 2 DIABETES MELLITUS
     Dosage: ORAL
     Route: 048
  3. PRAVASTATIN [Concomitant]
  4. FENOFIBRATE [Concomitant]
  5. TOPROL-XL [Concomitant]
  6. LYRICA [Concomitant]
  7. AMBIEN [Concomitant]
  8. ANTACID /00018101/ (ALUMINIUM HYDROXIDE, DIMETICONE, MAGNESIUM HYDROXI [Concomitant]

REACTIONS (5)
  - DIARRHOEA [None]
  - INJECTION SITE HAEMATOMA [None]
  - MEMORY IMPAIRMENT [None]
  - NAUSEA [None]
  - PAIN [None]
